FAERS Safety Report 10532930 (Version 1)
Quarter: 2014Q4

REPORT INFORMATION
  Report Type: Spontaneous
  Country: US (occurrence: US)
  Receive Date: 20141022
  Receipt Date: 20141022
  Transmission Date: 20150529
  Serious: No
  Sender: FDA-Public Use
  Company Number: US-009507513-1410USA009526

PATIENT
  Age: 98 Year
  Sex: Male

DRUGS (1)
  1. JANUVIA [Suspect]
     Active Substance: SITAGLIPTIN PHOSPHATE
     Indication: TYPE 2 DIABETES MELLITUS
     Dosage: CUT 100 MG TABLET IN A HALF TO GET A 50 MG DOSE
     Route: 048
     Dates: start: 2007

REACTIONS (2)
  - Glycosylated haemoglobin decreased [Unknown]
  - Wrong technique in drug usage process [Unknown]
